FAERS Safety Report 6166343-9 (Version None)
Quarter: 2009Q2

REPORT INFORMATION
  Report Type: 
  Country: None (occurrence: None)
  Receive Date: 20090422
  Receipt Date: 20090422
  Transmission Date: 20091009
  Serious: Yes (Life-Threatening, Hospitalization)
  Sender: FDA-Public Use
  Company Number: None

PATIENT
  Age: 65 Year
  Sex: Male
  Weight: 104.3 kg

DRUGS (11)
  1. CEFTIN [Suspect]
     Indication: UPPER RESPIRATORY TRACT INFECTION
     Dates: start: 20090211
  2. TOPROL-XL [Concomitant]
  3. GLYNASE [Concomitant]
  4. LISINOPRIL [Concomitant]
  5. ASPIRIN [Concomitant]
  6. ZYPREXA [Concomitant]
  7. LEXAPRO [Concomitant]
  8. ARTANE [Concomitant]
  9. B1 [Concomitant]
  10. GEODON [Concomitant]
  11. TOPAMAX [Concomitant]

REACTIONS (5)
  - CLOSTRIDIUM DIFFICILE COLITIS [None]
  - DIALYSIS [None]
  - DYSPHAGIA [None]
  - MEGACOLON [None]
  - RENAL FAILURE ACUTE [None]
